FAERS Safety Report 7465923-8 (Version None)
Quarter: 2011Q2

REPORT INFORMATION
  Report Type: 
  Country: None (occurrence: None)
  Receive Date: 20110509
  Receipt Date: 20100414
  Transmission Date: 20111010
  Serious: No
  Sender: FDA-Public Use
  Company Number: US-ALEXION-A201000428

PATIENT
  Sex: Female
  Weight: 68.934 kg

DRUGS (17)
  1. EXJADE [Concomitant]
     Dosage: 1500 MG, QD
     Route: 048
  2. TYLENOL (CAPLET) [Concomitant]
     Dosage: 325 MG, UNK
     Route: 048
  3. LOVENOX [Concomitant]
     Dosage: 100 MG, QD
     Route: 058
  4. ADVAIR DISKUS 100/50 [Concomitant]
     Dosage: INHALED
  5. MEPERIDINE HYDROCHLORIDE [Concomitant]
     Dosage: 25 MG, UNK
     Route: 042
  6. CELEXA [Concomitant]
     Route: 048
  7. DILAUDID [Concomitant]
     Indication: PAIN
     Dosage: 2 MG, Q3-4H PRN
     Route: 048
  8. POTASSIUM CHLORIDE [Concomitant]
     Route: 048
  9. LASIX [Concomitant]
     Route: 048
  10. METOPROLOL TARTRATE [Concomitant]
     Route: 048
  11. SOLIRIS [Suspect]
     Indication: PAROXYSMAL NOCTURNAL HAEMOGLOBINURIA
     Dosage: UNK
     Route: 042
  12. LOVENOX [Concomitant]
     Indication: HYPERCOAGULATION
     Dosage: 70 MG, BID
  13. COLACE [Concomitant]
     Indication: PROPHYLAXIS
     Dosage: 100 MG, BID (TAKE WITH PLENTY OF FLUIDS)
     Route: 048
  14. BENADRYL [Concomitant]
     Dosage: 50 MG, UNK
     Route: 042
  15. COUMADIN [Concomitant]
     Indication: HYPERCOAGULATION
     Dosage: 7.5 MG, QD
     Route: 048
  16. ALBUTEROL SULFATE [Concomitant]
     Dosage: INHALED
  17. ZITHROMAX [Concomitant]
     Dosage: 250 MG, QD 2 TABS ON DAY1, THEN 1 TAB QD ON DAYS 2-5
     Route: 048

REACTIONS (10)
  - ABDOMINAL PAIN [None]
  - BACK PAIN [None]
  - ANAEMIA [None]
  - IRON OVERLOAD [None]
  - LIVER FUNCTION TEST ABNORMAL [None]
  - CHILLS [None]
  - FATIGUE [None]
  - BLOOD LACTATE DEHYDROGENASE INCREASED [None]
  - HYPERCOAGULATION [None]
  - COUGH [None]
